FAERS Safety Report 9691356 (Version 3)
Quarter: 2014Q1

REPORT INFORMATION
  Report Type: Spontaneous
  Country: US (occurrence: US)
  Receive Date: 20131115
  Receipt Date: 20140102
  Transmission Date: 20141002
  Serious: Yes (Other)
  Sender: FDA-Public Use
  Company Number: US-PFIZER INC-2013323649

PATIENT
  Age: 33 Year
  Sex: Female

DRUGS (9)
  1. FOLIC ACID [Suspect]
     Indication: RHEUMATOID ARTHRITIS
     Dosage: 1 MG, DAILY
  2. METHOTREXATE SODIUM [Suspect]
     Indication: RHEUMATOID ARTHRITIS
     Dosage: 10 MG, WEEKLY
  3. METHOTREXATE SODIUM [Suspect]
     Dosage: 4 DF, WEEKLY
  4. METHOTREXATE SODIUM [Suspect]
     Dosage: 8 DF, WEEKLY
  5. ORENCIA [Suspect]
     Indication: RHEUMATOID ARTHRITIS
     Dosage: UNK, EVERY WEEK
     Route: 042
  6. HUMIRA [Suspect]
     Indication: RHEUMATOID ARTHRITIS
     Dosage: 40 MG, EVERY 2 WEEKS
     Route: 030
  7. NEXIUM [Concomitant]
  8. ALEVE [Concomitant]
  9. IBUPROFEN [Concomitant]
     Dosage: UNK

REACTIONS (1)
  - Rheumatoid arthritis [Unknown]
